FAERS Safety Report 5598377-7 (Version None)
Quarter: 2008Q1

REPORT INFORMATION
  Report Type: 
  Country: None (occurrence: None)
  Receive Date: 20080122
  Receipt Date: 20080118
  Transmission Date: 20080703
  Serious: Yes (Other)
  Sender: FDA-Public Use
  Company Number: GB-TEVA-166506ISR

PATIENT
  Age: 47 Year
  Sex: Female
  Weight: 65 kg

DRUGS (2)
  1. FLUOXETINE [Suspect]
     Indication: DEPRESSION
     Dates: start: 20050725, end: 20050826
  2. FLUOXETINE [Suspect]
     Dates: start: 20050826, end: 20050915

REACTIONS (1)
  - PULMONARY EOSINOPHILIA [None]
